FAERS Safety Report 5725511-8 (Version None)
Quarter: 2008Q2

REPORT INFORMATION
  Report Type: 
  Country: None (occurrence: None)
  Receive Date: 20080501
  Receipt Date: 20080418
  Transmission Date: 20081010
  Serious: Yes (Life-Threatening, Hospitalization)
  Sender: FDA-Public Use
  Company Number: US-JNJFOC-20070704151

PATIENT
  Sex: Male
  Weight: 83.46 kg

DRUGS (16)
  1. TRAMADOL ER [Suspect]
     Route: 048
  2. TRAMADOL ER [Suspect]
     Indication: OSTEOARTHRITIS
     Route: 048
  3. MELOXICAM [Suspect]
     Route: 048
  4. MELOXICAM [Suspect]
     Indication: OSTEOARTHRITIS
     Route: 048
  5. CLARITIN [Concomitant]
     Indication: SEASONAL ALLERGY
     Route: 065
  6. TYLENOL [Concomitant]
     Indication: ARTHRALGIA
     Route: 065
  7. ALKA-SELTZER [Concomitant]
     Indication: GASTROOESOPHAGEAL REFLUX DISEASE
     Route: 065
  8. DULCOLAX [Concomitant]
     Indication: CONSTIPATION
     Route: 065
  9. IMODIUM [Concomitant]
     Indication: DIARRHOEA
     Route: 048
  10. CHONDROITIN [Concomitant]
     Indication: OSTEOARTHRITIS
     Route: 048
  11. TUMS [Concomitant]
     Indication: GASTROOESOPHAGEAL REFLUX DISEASE
     Route: 048
  12. FLOMAX [Concomitant]
  13. ASPIRIN [Concomitant]
  14. ZOCOR [Concomitant]
  15. OMEGA 3 [Concomitant]
  16. NITROGLYCERIN [Concomitant]
     Indication: CHEST PAIN

REACTIONS (1)
  - CORONARY ARTERY DISEASE [None]
